FAERS Safety Report 9063222 (Version 4)
Quarter: 2013Q2

REPORT INFORMATION
  Report Type: Spontaneous
  Country: US (occurrence: US)
  Receive Date: 20130213
  Receipt Date: 20130418
  Transmission Date: 20140414
  Serious: Yes (Hospitalization)
  Sender: FDA-Public Use
  Company Number: US-GLAXOSMITHKLINE-A1011114A

PATIENT
  Age: 69 Year
  Sex: Male

DRUGS (13)
  1. LAMICTAL XR [Suspect]
     Indication: CONVULSION
     Dosage: 900MGD PER DAY
     Route: 048
     Dates: start: 2011
  2. PLAVIX [Concomitant]
  3. CELEBREX [Concomitant]
  4. DILANTIN [Concomitant]
  5. LEXAPRO [Concomitant]
  6. RISPERDAL [Concomitant]
  7. FLOMAX [Concomitant]
  8. FERROUS SULFATE [Concomitant]
  9. ISOSORBIDE [Concomitant]
  10. METOPROLOL [Concomitant]
  11. ASPIRIN [Concomitant]
  12. OMEPRAZOLE [Concomitant]
  13. TYLENOL [Concomitant]

REACTIONS (7)
  - Convulsion [Not Recovered/Not Resolved]
  - Haematochezia [Unknown]
  - Prescribed overdose [Not Recovered/Not Resolved]
  - Anaemia [Not Recovered/Not Resolved]
  - Asthenia [Not Recovered/Not Resolved]
  - Fall [Unknown]
  - Stress [Not Recovered/Not Resolved]
